FAERS Safety Report 7728288-X (Version None)
Quarter: 2011Q3

REPORT INFORMATION
  Report Type: 
  Country: None (occurrence: None)
  Receive Date: 20110905
  Receipt Date: 20110830
  Transmission Date: 20111222
  Serious: Yes (Death)
  Sender: FDA-Public Use
  Company Number: PHHY2011BR77595

PATIENT
  Age: 86 Year
  Sex: Male

DRUGS (5)
  1. FORMOTEROL FUMARATE [Suspect]
     Dosage: DOSE OF ONCE AT NIGHT OR UNTIL TWICE A DAY IF THERE WAS NECESSITY
  2. SPIRONOLACTONE [Concomitant]
  3. CLENIL [Concomitant]
  4. GLYBURIDE [Concomitant]
     Indication: DIABETES MELLITUS
  5. LOSARTAN [Concomitant]
     Indication: BLOOD PRESSURE

REACTIONS (4)
  - BLOOD GLUCOSE INCREASED [None]
  - DEATH [None]
  - ASTHENIA [None]
  - BLOOD PRESSURE INCREASED [None]
